FAERS Safety Report 9866983 (Version 1)
Quarter: 2014Q1

REPORT INFORMATION
  Report Type: Spontaneous
  Country: US (occurrence: None)
  Receive Date: 20140203
  Receipt Date: 20140203
  Transmission Date: 20141002
  Serious: Yes (Hospitalization)
  Sender: FDA-Public Use
  Company Number: None

PATIENT
  Age: 49 Year
  Sex: Female
  Weight: 122.47 kg

DRUGS (1)
  1. PRAMIPEXOLE [Suspect]
     Indication: RESTLESS LEGS SYNDROME
     Dosage: TAKEN BY MOUTH

REACTIONS (5)
  - Cardiac failure congestive [None]
  - Drug dependence [None]
  - Restless legs syndrome [None]
  - Condition aggravated [None]
  - Drug ineffective [None]
